FAERS Safety Report 10055020 (Version 1)
Quarter: 2014Q2

REPORT INFORMATION
  Report Type: Spontaneous
  Country: US (occurrence: US)
  Receive Date: 20140402
  Receipt Date: 20140402
  Transmission Date: 20141212
  Serious: No
  Sender: FDA-Public Use
  Company Number: US-GILEAD-2014-0098405

PATIENT
  Sex: Female

DRUGS (2)
  1. SOFOSBUVIR [Suspect]
     Indication: HEPATITIS C
     Route: 065
  2. PEGYLATED INTERFERON ALFA-2A [Concomitant]
     Indication: HEPATITIS C

REACTIONS (1)
  - Liver tenderness [Not Recovered/Not Resolved]
